FAERS Safety Report 24763900 (Version 2)
Quarter: 2025Q1

REPORT INFORMATION
  Report Type: Spontaneous
  Country: US (occurrence: US)
  Receive Date: 20241223
  Receipt Date: 20250103
  Transmission Date: 20250409
  Serious: No
  Sender: IDORSIA PHARMACEUTICALS
  Company Number: US-IDORSIA-008886-2024-US

PATIENT
  Sex: Male

DRUGS (3)
  1. QUVIVIQ [Suspect]
     Active Substance: DARIDOREXANT
     Indication: Insomnia
     Dosage: 50 MG, QD
     Route: 048
     Dates: start: 2022
  2. CASEIN\DIETARY SUPPLEMENT\THEANINE [Suspect]
     Active Substance: CASEIN\DIETARY SUPPLEMENT\THEANINE
     Indication: Insomnia
     Route: 065
  3. MELATONIN [Concomitant]
     Active Substance: MELATONIN

REACTIONS (2)
  - Abdominal discomfort [Recovered/Resolved]
  - Therapeutic product effect decreased [Not Recovered/Not Resolved]
